FAERS Safety Report 11916809 (Version 1)
Quarter: 2016Q1

REPORT INFORMATION
  Report Type: Spontaneous
  Country: US (occurrence: US)
  Receive Date: 20160114
  Receipt Date: 20160114
  Transmission Date: 20160526
  Serious: No
  Sender: FDA-Public Use
  Company Number: US-PFIZER INC-2015450423

PATIENT
  Sex: Female

DRUGS (2)
  1. BENZONATATE. [Suspect]
     Active Substance: BENZONATATE
     Dosage: UNK
  2. AMBIEN [Suspect]
     Active Substance: ZOLPIDEM TARTRATE
     Dosage: UNK

REACTIONS (2)
  - Hallucination [Unknown]
  - Drug hypersensitivity [Unknown]
